FAERS Safety Report 23139495 (Version 1)
Quarter: 2023Q4

REPORT INFORMATION
  Report Type: Spontaneous
  Country: US (occurrence: None)
  Receive Date: 20231102
  Receipt Date: 20231102
  Transmission Date: 20240109
  Serious: Yes (Other)
  Sender: FDA-Public Use
  Company Number: 2023A248972

PATIENT
  Sex: Female

DRUGS (1)
  1. FASENRA [Suspect]
     Active Substance: BENRALIZUMAB
     Route: 058

REACTIONS (5)
  - Eosinophilic oesophagitis [Unknown]
  - Chest discomfort [Unknown]
  - Neuropathy peripheral [Unknown]
  - Anxiety [Unknown]
  - Pulmonary function test decreased [Unknown]
